FAERS Safety Report 4670089-3 (Version None)
Quarter: 2005Q2

REPORT INFORMATION
  Report Type: 
  Country: None (occurrence: None)
  Receive Date: 20050523
  Receipt Date: 20050503
  Transmission Date: 20051028
  Serious: Yes (Hospitalization)
  Sender: FDA-Public Use
  Company Number: M-05-160

PATIENT
  Age: 80 Year
  Sex: Male

DRUGS (9)
  1. PACERONE (AMIODARONE HCL) 200 MG [Suspect]
     Indication: VENTRICULAR FIBRILLATION
     Dosage: 200 MG QD PO
     Route: 048
     Dates: start: 20050430
  2. PACERONE [Suspect]
     Indication: VENTRICULAR FIBRILLATION
     Dosage: 400 MG QD PO
     Route: 048
     Dates: start: 20050428
  3. AMIODARONE HYDROCHLORIDE [Suspect]
     Indication: VENTRICULAR FIBRILLATION
     Dosage: 100 MG QD PO
     Route: 048
  4. BUMEX [Concomitant]
  5. LANOXIN [Concomitant]
  6. COREG [Concomitant]
  7. ALTACE [Concomitant]
  8. COUMADIN [Concomitant]
  9. SPIRONOLACTONE [Concomitant]

REACTIONS (9)
  - DEHYDRATION [None]
  - DIFFICULTY IN WALKING [None]
  - DYSPNOEA [None]
  - HYPERGLYCAEMIA [None]
  - HYPERKALAEMIA [None]
  - HYPONATRAEMIA [None]
  - NAUSEA [None]
  - REFUSAL OF TREATMENT BY PATIENT [None]
  - SYNCOPE [None]
